FAERS Safety Report 6696023-2 (Version None)
Quarter: 2010Q2

REPORT INFORMATION
  Report Type: 
  Country: None (occurrence: None)
  Receive Date: 20100426
  Receipt Date: 20100413
  Transmission Date: 20101027
  Serious: Yes (Death, Hospitalization, Other)
  Sender: FDA-Public Use
  Company Number: PHEH2008US02669

PATIENT
  Sex: Male

DRUGS (47)
  1. ZOMETA [Suspect]
     Dosage: UNK
     Dates: start: 20060214, end: 20060502
  2. AREDIA [Suspect]
     Dosage: UNK
     Dates: start: 20060620, end: 20060721
  3. CHEMOTHERAPEUTICS NOS [Concomitant]
  4. SENNA [Concomitant]
     Dosage: 8.6 MG, BID
  5. DEXAMETHASONE [Concomitant]
     Dosage: 4 MG, UNK
  6. VELCADE [Concomitant]
  7. ACYCLOVIR [Concomitant]
     Dosage: 200 MG, Q12H
  8. CEFZIL [Concomitant]
     Dosage: 250 MG, Q12H
  9. PROSCAR [Concomitant]
     Dosage: 5 MG, DAILY
  10. UROXATRAL [Concomitant]
     Dosage: 10 MG, UNK
  11. LEVAQUIN [Concomitant]
  12. MEGACE [Concomitant]
     Dosage: 40 MG/ML BID
     Route: 048
  13. PROTONIX [Concomitant]
     Dosage: 40 MG, DAILY
     Route: 048
  14. MAGNESIUM OXIDE [Concomitant]
     Dosage: 400 MG, BID
     Route: 048
  15. DARVOCET-N 100 [Concomitant]
  16. HYDROCODONE BITARTRATE [Concomitant]
  17. CHLORHEXIDINE GLUCONATE [Concomitant]
  18. REVLIMID [Concomitant]
  19. TEQUIN [Concomitant]
  20. CYMBALTA [Concomitant]
  21. WARFARIN SODIUM [Concomitant]
  22. LIPITOR [Concomitant]
  23. VALTREX [Concomitant]
  24. POTASSIUM [Concomitant]
  25. VIOXX [Concomitant]
  26. VICODIN [Concomitant]
  27. PRILOSEC [Concomitant]
     Dosage: 20 MG, QD
     Route: 048
  28. COUMADIN [Concomitant]
  29. LYRICA [Concomitant]
  30. CENTRUM [Concomitant]
  31. VITAMIN B6 [Concomitant]
  32. ASPIRIN [Concomitant]
  33. ALLEGRA [Concomitant]
  34. ALKERAN [Concomitant]
  35. PREDNISONE [Concomitant]
  36. FERROUS SULFATE TAB [Concomitant]
  37. ALLOPURINOL [Concomitant]
     Dosage: 100 MG DAILY
  38. PANTOPRAZOLE [Concomitant]
     Dosage: 40 MG DAILY
  39. CATAPRES                                /USA/ [Concomitant]
  40. DOXIL [Concomitant]
  41. BENADRYL ^ACHE^ [Concomitant]
  42. TYLENOL-500 [Concomitant]
  43. ALBUTEROL [Concomitant]
  44. ATROVENT [Concomitant]
  45. MORPHINE SULFATE [Concomitant]
  46. TEMAZEPAM [Concomitant]
  47. SODIUM BICARBONATE [Concomitant]

REACTIONS (63)
  - ANAEMIA [None]
  - ANHEDONIA [None]
  - ANXIETY [None]
  - ARTHRALGIA [None]
  - ASTHENIA [None]
  - BENIGN PROSTATIC HYPERPLASIA [None]
  - BETA GLOBULIN INCREASED [None]
  - BLOOD BILIRUBIN INCREASED [None]
  - BLOOD CALCIUM DECREASED [None]
  - BONE DISORDER [None]
  - COLONIC POLYP [None]
  - CONFUSIONAL STATE [None]
  - DEATH [None]
  - DEHYDRATION [None]
  - DELIRIUM [None]
  - DEPRESSION [None]
  - DISABILITY [None]
  - EPISTAXIS [None]
  - FALL [None]
  - GASTROINTESTINAL INFLAMMATION [None]
  - GASTROOESOPHAGEAL REFLUX DISEASE [None]
  - GINGIVAL BLEEDING [None]
  - GINGIVAL RECESSION [None]
  - GINGIVAL SWELLING [None]
  - GRANULOMA [None]
  - HAEMATOCRIT DECREASED [None]
  - HAEMOGLOBIN DECREASED [None]
  - HYPERCALCAEMIA [None]
  - HYPERTENSION [None]
  - HYPOCALCAEMIA [None]
  - HYPOKALAEMIA [None]
  - INJURY [None]
  - INTERSTITIAL LUNG DISEASE [None]
  - INTERVERTEBRAL DISC PROTRUSION [None]
  - JAW DISORDER [None]
  - LARGE INTESTINAL ULCER [None]
  - LEUKOPENIA [None]
  - LOOSE TOOTH [None]
  - MONOCLONAL IMMUNOGLOBULIN PRESENT [None]
  - MOUTH HAEMORRHAGE [None]
  - MULTIPLE MYELOMA [None]
  - NERVOUS SYSTEM DISORDER [None]
  - NEUROPATHY PERIPHERAL [None]
  - ORTHOSTATIC HYPOTENSION [None]
  - OSTEONECROSIS [None]
  - PAIN [None]
  - PAIN IN JAW [None]
  - PANCYTOPENIA [None]
  - PARAESTHESIA [None]
  - PELVIC FRACTURE [None]
  - PROTEINURIA [None]
  - RED BLOOD CELL COUNT DECREASED [None]
  - RENAL FAILURE ACUTE [None]
  - RENAL FAILURE CHRONIC [None]
  - SEPSIS SYNDROME [None]
  - SINUS DISORDER [None]
  - SQUAMOUS CELL CARCINOMA [None]
  - TENDONITIS [None]
  - THROMBOCYTOPENIA [None]
  - TOOTH IMPACTED [None]
  - TOOTH INFECTION [None]
  - URINARY RETENTION [None]
  - WOUND DEHISCENCE [None]
